FAERS Safety Report 6993657-2 (Version None)
Quarter: 2010Q3

REPORT INFORMATION
  Report Type: 
  Country: None (occurrence: None)
  Receive Date: 20100917
  Receipt Date: 20071114
  Transmission Date: 20110219
  Serious: Yes (Other)
  Sender: FDA-Public Use
  Company Number: US-ASTRAZENECA-2006UW26665

PATIENT
  Age: 536 Month
  Sex: Male
  Weight: 136.8 kg

DRUGS (10)
  1. SEROQUEL [Suspect]
     Indication: SLEEP DISORDER THERAPY
     Dosage: 25-100 MG ONCE EVERY NIGHT
     Route: 048
     Dates: start: 20031006
  2. SEROQUEL [Suspect]
     Indication: ANXIETY
     Dosage: 25-100 MG ONCE EVERY NIGHT
     Route: 048
     Dates: start: 20031006
  3. SEROQUEL [Suspect]
     Indication: DEPRESSION
     Dosage: 25-100 MG ONCE EVERY NIGHT
     Route: 048
     Dates: start: 20031006
  4. SEROQUEL [Suspect]
     Indication: THINKING ABNORMAL
     Dosage: 25-100 MG ONCE EVERY NIGHT
     Route: 048
     Dates: start: 20031006
  5. SEROQUEL [Suspect]
     Route: 048
  6. SEROQUEL [Suspect]
     Route: 048
  7. SEROQUEL [Suspect]
     Route: 048
  8. SEROQUEL [Suspect]
     Route: 048
  9. CLONAZEPAM [Concomitant]
     Dosage: 0.5-1 MG
     Route: 048
     Dates: start: 20050713
  10. CITALOPRAM HYDROBROMIDE [Concomitant]
     Dosage: 20-40 MG
     Route: 048

REACTIONS (3)
  - DIABETES MELLITUS [None]
  - PANCREATITIS [None]
  - TYPE 2 DIABETES MELLITUS [None]
